FAERS Safety Report 18036373 (Version 4)
Quarter: 2022Q2

REPORT INFORMATION
  Report Type: Report from Study
  Country: US (occurrence: US)
  Receive Date: 20200717
  Receipt Date: 20220617
  Transmission Date: 20220721
  Serious: Yes (Death, Other)
  Sender: FDA-Public Use
  Company Number: US-ACADIA PHARMACEUTICALS INC.-ACA-2020-PIM-002094

PATIENT
  Age: 68 Year
  Sex: Male

DRUGS (11)
  1. NUPLAZID [Suspect]
     Active Substance: PIMAVANSERIN TARTRATE
     Dosage: UNK
     Route: 065
  2. NUPLAZID [Suspect]
     Active Substance: PIMAVANSERIN TARTRATE
     Indication: Parkinson^s disease psychosis
     Dosage: 34 MILLIGRAM, QD
     Route: 048
  3. NUPLAZID [Suspect]
     Active Substance: PIMAVANSERIN TARTRATE
     Indication: Hallucination
     Dosage: 34 MILLIGRAM, QD
     Route: 048
     Dates: start: 202107
  4. NUPLAZID [Suspect]
     Active Substance: PIMAVANSERIN TARTRATE
     Indication: Delusion
  5. MIRALAX [Concomitant]
     Active Substance: POLYETHYLENE GLYCOL 3350
     Dosage: 17 G/DO
  6. STOOL SOFTENER (DOCUSATE) [Concomitant]
     Active Substance: DOCUSATE
  7. ALEVE [Concomitant]
     Active Substance: NAPROXEN SODIUM
     Dosage: 220 MILLIGRAM
  8. ASPIRIN [Concomitant]
     Active Substance: ASPIRIN
     Dosage: 81 MILLIGRAM
  9. CASTOR OIL [Concomitant]
     Active Substance: CASTOR OIL
     Dosage: 100 %
  10. VITAMINS [Concomitant]
     Active Substance: VITAMINS
  11. VITAMIN B12 [Concomitant]
     Active Substance: CYANOCOBALAMIN
     Dosage: 2500 MCG

REACTIONS (11)
  - Death [Recovered/Resolved]
  - Syncope [Unknown]
  - Adverse drug reaction [Unknown]
  - Condition aggravated [Unknown]
  - Adverse drug reaction [Unknown]
  - Dysstasia [Unknown]
  - Insomnia [Unknown]
  - Adverse drug reaction [Unknown]
  - Incoherent [Unknown]
  - Gait disturbance [Unknown]
  - Fall [Unknown]

NARRATIVE: CASE EVENT DATE: 20220603
